FAERS Safety Report 17716402 (Version 1)
Quarter: 2020Q2

REPORT INFORMATION
  Report Type: Spontaneous
  Country: US (occurrence: US)
  Receive Date: 20200428
  Receipt Date: 20200428
  Transmission Date: 20200714
  Serious: Yes (Hospitalization, Other)
  Sender: FDA-Public Use
  Company Number: US-BRISTOL-MYERS SQUIBB COMPANY-BMS-2020-033993

PATIENT
  Sex: Female
  Weight: 106.14 kg

DRUGS (1)
  1. ELIQUIS [Suspect]
     Active Substance: APIXABAN
     Indication: EMBOLISM VENOUS
     Dosage: 5 MILLIGRAM, BID
     Route: 048
     Dates: start: 2016

REACTIONS (4)
  - Cardiac failure congestive [Unknown]
  - Incontinence [Unknown]
  - Atrial fibrillation [Unknown]
  - Cough [Unknown]

NARRATIVE: CASE EVENT DATE: 2019
